FAERS Safety Report 25264455 (Version 1)
Quarter: 2025Q2

REPORT INFORMATION
  Report Type: Spontaneous
  Country: CN (occurrence: CN)
  Receive Date: 20250502
  Receipt Date: 20250502
  Transmission Date: 20250716
  Serious: Yes (Life-Threatening, Hospitalization)
  Sender: BAYER HEALTHCARE PHARMACEUTICALS INC.
  Company Number: CN-BAYER-2025A059965

PATIENT
  Age: 52 Year
  Sex: Female

DRUGS (2)
  1. ULTRAVIST [Suspect]
     Active Substance: IOPROMIDE
     Indication: Computerised tomogram
     Route: 042
     Dates: start: 20250427, end: 20250427
  2. ULTRAVIST [Suspect]
     Active Substance: IOPROMIDE
     Indication: Pulmonary mass

REACTIONS (3)
  - Abdominal pain [Recovering/Resolving]
  - Dizziness [None]
  - Nausea [None]

NARRATIVE: CASE EVENT DATE: 20250427
